FAERS Safety Report 7098239-2 (Version None)
Quarter: 2010Q4

REPORT INFORMATION
  Report Type: 
  Country: None (occurrence: None)
  Receive Date: 20101105
  Receipt Date: 20101022
  Transmission Date: 20110411
  Serious: Yes (Other)
  Sender: FDA-Public Use
  Company Number: DSJ-2010-19121

PATIENT
  Age: 40 Year
  Sex: Female

DRUGS (2)
  1. BENICAR [Suspect]
     Indication: HYPERTENSION
     Dosage: 20 MG (20 MG, 1 IN 1 D), ORAL, 40 MG (20 MG, 2 IN 1 D), PER ORAL
     Route: 048
     Dates: start: 20090101
  2. ACETYLSALICYLIC ACID SRT [Concomitant]

REACTIONS (3)
  - HYPOAESTHESIA ORAL [None]
  - TREATMENT NONCOMPLIANCE [None]
  - VISION BLURRED [None]
